FAERS Safety Report 4312388-0 (Version None)
Quarter: 2004Q1

REPORT INFORMATION
  Report Type: 
  Country: None (occurrence: None)
  Receive Date: 20040303
  Receipt Date: 20040223
  Transmission Date: 20041129
  Serious: Yes (Disabling)
  Sender: FDA-Public Use
  Company Number: 2004GB00462

PATIENT
  Age: 76 Year
  Sex: Male
  Weight: 86 kg

DRUGS (2)
  1. FELODIPINE [Suspect]
     Indication: HYPERTENSION
     Dosage: 2.5 MG PO
     Route: 048
     Dates: start: 19990101
  2. ASPIRIN [Concomitant]

REACTIONS (1)
  - ALVEOLITIS FIBROSING [None]
